FAERS Safety Report 19997919 (Version 2)
Quarter: 2021Q4

REPORT INFORMATION
  Report Type: Report from Study
  Country: CA (occurrence: CA)
  Receive Date: 20211026
  Receipt Date: 20211112
  Transmission Date: 20220303
  Serious: Yes (Other)
  Sender: FDA-Public Use
  Company Number: CA-ASTRAZENECA-2021A770336

PATIENT
  Sex: Female

DRUGS (1)
  1. TRASTUZUMAB DERUXTECAN [Suspect]
     Active Substance: TRASTUZUMAB DERUXTECAN
     Indication: HER2 positive breast cancer
     Dosage: 257 MG, ONCE EVERY 3 WK
     Route: 042
     Dates: start: 20210916

REACTIONS (3)
  - Illness [Recovered/Resolved]
  - Weight decreased [Recovering/Resolving]
  - Fatigue [Recovered/Resolved]
